FAERS Safety Report 9490746 (Version 1)
Quarter: 2013Q3

REPORT INFORMATION
  Report Type: Spontaneous
  Country: US (occurrence: None)
  Receive Date: 20130828
  Receipt Date: 20130828
  Transmission Date: 20140515
  Serious: Yes (Hospitalization)
  Sender: FDA-Public Use
  Company Number: None

PATIENT
  Age: 60 Year
  Sex: 0
  Weight: 88.2 kg

DRUGS (1)
  1. LITHIUM [Suspect]
     Indication: SCHIZOAFFECTIVE DISORDER
     Route: 048
     Dates: start: 20121219, end: 20130803

REACTIONS (6)
  - Dizziness [None]
  - Diarrhoea [None]
  - Hypotension [None]
  - Blood urea increased [None]
  - Blood creatinine increased [None]
  - Muscular weakness [None]
